FAERS Safety Report 5508048-0 (Version None)
Quarter: 2007Q4

REPORT INFORMATION
  Report Type: 
  Country: None (occurrence: None)
  Receive Date: 20071106
  Receipt Date: 20071023
  Transmission Date: 20080405
  Serious: Yes (Life-Threatening, Other)
  Sender: FDA-Public Use
  Company Number: GB-RANBAXY-2007RR-10992

PATIENT

DRUGS (1)
  1. SERTRALINE [Suspect]
     Indication: DEPRESSION
     Dosage: 50 MG, UNK
     Dates: start: 20061117

REACTIONS (2)
  - STILLBIRTH [None]
  - VAGINAL HAEMORRHAGE [None]
